FAERS Safety Report 10079377 (Version 1)
Quarter: 2014Q2

REPORT INFORMATION
  Report Type: Report from Study
  Country: US (occurrence: US)
  Receive Date: 20140415
  Receipt Date: 20140415
  Transmission Date: 20141212
  Serious: Yes (Hospitalization)
  Sender: FDA-Public Use
  Company Number: PHEH2014US007240

PATIENT
  Sex: Male

DRUGS (2)
  1. CLOZAPINE [Suspect]
     Dosage: UNK UKN, UNK
  2. CLONAZEPAM [Concomitant]
     Dosage: UNK UKN, UNK

REACTIONS (3)
  - Paranoia [Unknown]
  - Suicidal ideation [Unknown]
  - White blood cell count increased [Unknown]
